FAERS Safety Report 5370325-4 (Version None)
Quarter: 2007Q2

REPORT INFORMATION
  Report Type: 
  Country: None (occurrence: None)
  Receive Date: 20070626
  Receipt Date: 20061107
  Transmission Date: 20071010
  Serious: No
  Sender: FDA-Public Use
  Company Number: US-AMGEN-US199455

PATIENT
  Sex: Female
  Weight: 61.3 kg

DRUGS (6)
  1. ARANESP [Suspect]
     Indication: MYELODYSPLASTIC SYNDROME
     Route: 058
     Dates: start: 20061011, end: 20061201
  2. TOPROL-XL [Concomitant]
     Route: 065
  3. MICARDIS [Concomitant]
     Route: 065
  4. GLUCOSAMINE [Concomitant]
     Route: 065
  5. PREVACID [Concomitant]
     Route: 065
  6. VITAMIN CAP [Concomitant]
     Route: 065

REACTIONS (4)
  - ARRHYTHMIA [None]
  - HYPERTENSION [None]
  - MALAISE [None]
  - NO THERAPEUTIC RESPONSE [None]
